FAERS Safety Report 8161259-0 (Version None)
Quarter: 2012Q1

REPORT INFORMATION
  Report Type: 
  Country: None (occurrence: None)
  Receive Date: 20120222
  Receipt Date: 20120222
  Transmission Date: 20120608
  Serious: Yes (Other)
  Sender: FDA-Public Use
  Company Number: None

PATIENT
  Sex: Male
  Weight: 58.9676 kg

DRUGS (1)
  1. METOLAZONE [Suspect]
     Indication: DIURETIC THERAPY
     Dosage: 1 TIME USE
     Dates: start: 20120125

REACTIONS (9)
  - DRY MOUTH [None]
  - DRY THROAT [None]
  - DECREASED APPETITE [None]
  - DIZZINESS [None]
  - HYPOAESTHESIA [None]
  - SYNCOPE [None]
  - FATIGUE [None]
  - NAUSEA [None]
  - MUSCULAR WEAKNESS [None]
